FAERS Safety Report 8932912 (Version 1)
Quarter: 2012Q4

REPORT INFORMATION
  Report Type: Spontaneous
  Country: DK (occurrence: None)
  Receive Date: 20121119
  Receipt Date: 20121119
  Transmission Date: 20130627
  Serious: Yes (Hospitalization)
  Sender: FDA-Public Use
  Company Number: 2012MA013416

PATIENT
  Age: 25 Year
  Sex: Male

DRUGS (6)
  1. TRAMADOL HYDROCHLORIDE [Suspect]
     Indication: HYPERTENSIVE CRISIS
     Route: 042
     Dates: start: 20121012, end: 20121012
  2. MORPHINE [Concomitant]
  3. ONDANSETRON [Concomitant]
  4. PARACETAMOL [Concomitant]
  5. METOCLOPRAMIDE [Concomitant]
  6. OMEPRAZOLE [Concomitant]

REACTIONS (1)
  - Grand mal convulsion [None]
